FAERS Safety Report 8380241-1 (Version None)
Quarter: 2012Q2

REPORT INFORMATION
  Report Type: 
  Country: None (occurrence: None)
  Receive Date: 20120523
  Receipt Date: 20120516
  Transmission Date: 20120825
  Serious: Yes (Hospitalization, Other)
  Sender: FDA-Public Use
  Company Number: PHHY2012BR042504

PATIENT
  Sex: Female
  Weight: 68 kg

DRUGS (16)
  1. LEVOTHYROXINE SODIUM [Concomitant]
     Indication: HYPOTHYROIDISM
     Dosage: 88 UG, UNK
  2. LIPOSIC [Concomitant]
     Indication: GLAUCOMA
     Dosage: 1 DF, UNK
  3. ISOSORBIDE MONONITRATE [Concomitant]
     Indication: CARDIAC DISORDER
     Dosage: 20 MG, UNK
  4. PLAGREL [Concomitant]
     Dosage: 75 MG, UNK
  5. VARFAREL [Concomitant]
     Indication: CARDIAC DISORDER
     Dosage: 2 DF, UNK
  6. EXFORGE [Suspect]
     Indication: HYPERTENSION
     Dosage: 1 DF (320/5 MG), DAILY
  7. PATANOL [Concomitant]
     Indication: GLAUCOMA
     Dosage: 1 DF, UNK
  8. CARVEDILOL [Concomitant]
     Indication: HYPERTENSION
     Dosage: 1 DF, UNK
  9. XALATAN [Concomitant]
     Indication: GLAUCOMA
     Dosage: 1 DF, UNK
  10. SYSTANE (PROPYLENE GLYCOL/MACROGOL) [Concomitant]
     Indication: GLAUCOMA
     Dosage: 1 DF, UNK
  11. FLOCSID [Concomitant]
     Indication: GLAUCOMA
     Dosage: 1 DF, UNK
  12. CLONIDINE HYDROCHLORIDE [Concomitant]
     Indication: HYPERTENSION
     Dosage: UNK UKN, UNK
  13. OLCADIL [Concomitant]
     Dosage: 2 MG, UNK
  14. DIURISA [Concomitant]
  15. PANTOPRAZOLE [Concomitant]
     Indication: GASTRITIS
  16. VEKIA [Concomitant]
     Dosage: UNK UKN, UNK

REACTIONS (12)
  - FACIAL PAIN [None]
  - BLOOD CREATININE INCREASED [None]
  - GASTROENTERITIS [None]
  - NEOPLASM MALIGNANT [None]
  - DEHYDRATION [None]
  - CHEST PAIN [None]
  - BONE PAIN [None]
  - COUGH [None]
  - EPISTAXIS [None]
  - ASTHENIA [None]
  - GASTROOESOPHAGEAL REFLUX DISEASE [None]
  - BLOOD CREATINE PHOSPHOKINASE INCREASED [None]
